FAERS Safety Report 4734850-9 (Version None)
Quarter: 2005Q3

REPORT INFORMATION
  Report Type: 
  Country: None (occurrence: None)
  Receive Date: 20050804
  Receipt Date: 20050420
  Transmission Date: 20060218
  Serious: Yes (Other)
  Sender: FDA-Public Use
  Company Number: DE-BRISTOL-MYERS SQUIBB COMPANY-12943742

PATIENT
  Age: 57 Year
  Sex: Male
  Weight: 78 kg

DRUGS (6)
  1. CARBOPLATIN [Suspect]
     Indication: BRONCHIAL CARCINOMA
     Route: 042
     Dates: start: 20050303, end: 20050303
  2. TAXOL [Suspect]
     Indication: BRONCHIAL CARCINOMA
     Route: 042
     Dates: start: 20050303, end: 20050303
  3. FORTECORTIN [Concomitant]
     Indication: PREMEDICATION
     Route: 042
  4. KEVATRIL [Concomitant]
     Indication: PREMEDICATION
     Route: 042
  5. RANITIDINE [Concomitant]
     Indication: PREMEDICATION
     Route: 042
  6. CLEMASTINE FUMARATE [Concomitant]
     Indication: PREMEDICATION
     Route: 042

REACTIONS (5)
  - ANAEMIA [None]
  - HYPERSENSITIVITY [None]
  - LEUKOPENIA [None]
  - NEUTROPENIA [None]
  - THROMBOCYTOPENIA [None]
